FAERS Safety Report 4471413-7 (Version None)
Quarter: 2004Q4

REPORT INFORMATION
  Report Type: 
  Country: None (occurrence: None)
  Receive Date: 20041006
  Receipt Date: 20041006
  Transmission Date: 20050328
  Serious: No
  Sender: FDA-Public Use
  Company Number: None

PATIENT
  Age: 2 Year
  Sex: Male
  Weight: 9.5255 kg

DRUGS (1)
  1. AORTIC VALVE ALABAMA TISSUE CENTER, INC. [Suspect]
     Dates: start: 20040827

REACTIONS (4)
  - CULTURE POSITIVE [None]
  - IMPLANT SITE INFECTION [None]
  - PHARMACEUTICAL PRODUCT COMPLAINT [None]
  - STAPHYLOCOCCAL INFECTION [None]
